FAERS Safety Report 5473558-1 (Version None)
Quarter: 2007Q4

REPORT INFORMATION
  Report Type: 
  Country: None (occurrence: None)
  Receive Date: 20071001
  Receipt Date: 20070521
  Transmission Date: 20080405
  Serious: Yes (Other)
  Sender: FDA-Public Use
  Company Number: US-ASTRAZENECA-2007UW09436

PATIENT
  Age: 74 Year
  Sex: Female
  Weight: 72.6 kg

DRUGS (8)
  1. ARIMIDEX [Suspect]
     Indication: BREAST CANCER FEMALE
     Route: 048
     Dates: start: 20070409, end: 20070502
  2. ARIMIDEX [Suspect]
     Route: 048
     Dates: start: 20070509
  3. ALEVE [Concomitant]
  4. TYLENOL (CAPLET) [Concomitant]
  5. CALCIUM WITH D [Concomitant]
  6. FISH OIL [Concomitant]
  7. TYLENOL W/ CODEINE [Concomitant]
     Indication: BACK PAIN
  8. FOSAMAX [Concomitant]

REACTIONS (10)
  - ANOREXIA [None]
  - BACK PAIN [None]
  - BONE PAIN [None]
  - COMPRESSION FRACTURE [None]
  - FATIGUE [None]
  - MUSCLE SPASMS [None]
  - MUSCULOSKELETAL CHEST PAIN [None]
  - OSTEOPOROSIS [None]
  - PAIN [None]
  - RASH PRURITIC [None]
